FAERS Safety Report 8205447-3 (Version None)
Quarter: 2012Q1

REPORT INFORMATION
  Report Type: 
  Country: None (occurrence: None)
  Receive Date: 20120313
  Receipt Date: 20120301
  Transmission Date: 20120608
  Serious: Yes (Death, Hospitalization, Other)
  Sender: FDA-Public Use
  Company Number: BE-ELI_LILLY_AND_COMPANY-BE201112001570

PATIENT
  Sex: Female
  Weight: 59 kg

DRUGS (10)
  1. FORTEO [Suspect]
     Indication: OSTEOPOROSIS
     Dosage: UNK
     Dates: start: 20101027, end: 20111216
  2. SINTROM [Concomitant]
     Indication: ATRIAL FIBRILLATION
  3. CORDARONE [Concomitant]
     Indication: ATRIAL FIBRILLATION
  4. CALCIUM W/VITAMIN D NOS [Concomitant]
  5. ENOXAPARIN SODIUM [Concomitant]
     Dosage: UNK
     Dates: start: 20060701
  6. ALLOPURINOL [Concomitant]
     Indication: DIURETIC THERAPY
  7. ASPIRIN [Concomitant]
     Indication: ANTICOAGULANT THERAPY
  8. LASIX [Concomitant]
     Indication: CARDIAC FAILURE
     Dosage: UNK
     Dates: start: 20080101
  9. BISOPROLOL FUMARATE [Concomitant]
     Indication: CARDIAC FAILURE
     Dosage: UNK
     Dates: start: 20060101
  10. COZAAR [Concomitant]

REACTIONS (9)
  - RENAL FAILURE [None]
  - CARDIAC FAILURE [None]
  - FALL [None]
  - CARDIORENAL SYNDROME [None]
  - GENERAL PHYSICAL HEALTH DETERIORATION [None]
  - FLUID RETENTION [None]
  - ANAEMIA [None]
  - HAEMATOMA [None]
  - MITRAL VALVE INCOMPETENCE [None]
